FAERS Safety Report 7302196-0 (Version None)
Quarter: 2011Q1

REPORT INFORMATION
  Report Type: 
  Country: None (occurrence: None)
  Receive Date: 20110218
  Receipt Date: 20110209
  Transmission Date: 20110831
  Serious: Yes (Other)
  Sender: FDA-Public Use
  Company Number: PHHY2011IT11893

PATIENT

DRUGS (1)
  1. CERTICAN [Suspect]
     Indication: HEART TRANSPLANT

REACTIONS (1)
  - DEEP VEIN THROMBOSIS [None]
